FAERS Safety Report 5812550-1 (Version None)
Quarter: 2008Q3

REPORT INFORMATION
  Report Type: 
  Country: None (occurrence: None)
  Receive Date: 20080711
  Receipt Date: 20080630
  Transmission Date: 20090109
  Serious: Yes (Other)
  Sender: FDA-Public Use
  Company Number: S08-GER-02350-01

PATIENT
  Age: 31 Year
  Sex: Male
  Weight: 70 kg

DRUGS (2)
  1. CITALOPRAM HYDROBROMIDE [Suspect]
     Dosage: 1600 MG ONCE PO
     Route: 048
     Dates: start: 20080628, end: 20080628
  2. CITALOPRAM HYDROBROMIDE [Suspect]

REACTIONS (7)
  - DIARRHOEA [None]
  - GASTROINTESTINAL SOUNDS ABNORMAL [None]
  - HYPERHIDROSIS [None]
  - INTENTIONAL OVERDOSE [None]
  - MYDRIASIS [None]
  - RESTLESSNESS [None]
  - SUICIDE ATTEMPT [None]
